FAERS Safety Report 9785809 (Version 2)
Quarter: 2014Q1

REPORT INFORMATION
  Report Type: Spontaneous
  Country: DE (occurrence: DE)
  Receive Date: 20131227
  Receipt Date: 20140106
  Transmission Date: 20141002
  Serious: Yes (Hospitalization)
  Sender: FDA-Public Use
  Company Number: DE-JNJFOC-20131213950

PATIENT
  Age: 85 Year
  Sex: Male
  Weight: 78 kg

DRUGS (2)
  1. XARELTO [Suspect]
     Indication: CEREBROVASCULAR ACCIDENT PROPHYLAXIS
     Route: 048
  2. XARELTO [Suspect]
     Indication: ATRIAL FIBRILLATION
     Route: 048

REACTIONS (4)
  - Transient ischaemic attack [Recovered/Resolved]
  - Cerebral ischaemia [Recovered/Resolved]
  - Headache [Recovered/Resolved]
  - Fall [Unknown]
